FAERS Safety Report 4522025-8 (Version None)
Quarter: 2004Q4

REPORT INFORMATION
  Report Type: 
  Country: None (occurrence: None)
  Receive Date: 20041207
  Receipt Date: 20041118
  Transmission Date: 20050328
  Serious: Yes (Hospitalization)
  Sender: FDA-Public Use
  Company Number: USA040259937

PATIENT
  Age: 77 Year
  Sex: Female
  Weight: 55 kg

DRUGS (11)
  1. FORTEO [Suspect]
     Indication: OSTEOPOROSIS
     Dosage: 20 UG/1 DAY
     Dates: start: 20031101
  2. PREDNISONE [Concomitant]
  3. COUMADIN [Concomitant]
  4. DIAPINE (DIAZEPAM) [Concomitant]
  5. CALCIUM CARBONATE [Concomitant]
  6. IRON [Concomitant]
  7. KLOR-CON [Concomitant]
  8. ATENOLOL [Concomitant]
  9. LISINOPRIL [Concomitant]
  10. DIGOXIN [Concomitant]
  11. AMIODARONE HCL [Concomitant]

REACTIONS (9)
  - CELLULITIS [None]
  - CONDITION AGGRAVATED [None]
  - DEHYDRATION [None]
  - EYE DISORDER [None]
  - NERVOUSNESS [None]
  - PHARMACEUTICAL PRODUCT COMPLAINT [None]
  - PRURITUS [None]
  - RENAL FAILURE [None]
  - STOMACH DISCOMFORT [None]
